FAERS Safety Report 5573896-8 (Version None)
Quarter: 2007Q4

REPORT INFORMATION
  Report Type: 
  Country: None (occurrence: None)
  Receive Date: 20071226
  Receipt Date: 20071214
  Transmission Date: 20080405
  Serious: Yes (Other)
  Sender: FDA-Public Use
  Company Number: US-PFIZER INC-2007105040

PATIENT
  Sex: Female
  Weight: 76.2 kg

DRUGS (6)
  1. NEURONTIN [Suspect]
     Indication: FIBROMYALGIA
     Dates: start: 20040301, end: 20040301
  2. NEURONTIN [Suspect]
     Indication: ARTHRITIS
  3. PAMELOR [Concomitant]
  4. GLYBURIDE [Concomitant]
  5. NORVASC [Concomitant]
  6. LISINOPRIL [Concomitant]

REACTIONS (4)
  - MALAISE [None]
  - PAIN [None]
  - POLYMYALGIA RHEUMATICA [None]
  - SOMNOLENCE [None]
